FAERS Safety Report 8840898 (Version 1)
Quarter: 2012Q4

REPORT INFORMATION
  Report Type: 
  Country: US (occurrence: US)
  Receive Date: 20121015
  Receipt Date: 20121015
  Transmission Date: 20130627
  Serious: Yes (Hospitalization)
  Sender: FDA-Public Use
  Company Number: US-ROCHE-1130349

PATIENT
  Sex: Male

DRUGS (7)
  1. NUTROPIN [Suspect]
     Indication: RENAL FAILURE CHRONIC
     Dosage: 0.35/mg/kg/wk
     Route: 058
  2. NUTROPIN [Suspect]
     Indication: AZOTAEMIA
  3. CEFOTAXIME [Concomitant]
     Route: 065
  4. CECLOR [Concomitant]
     Route: 065
  5. PREDNISONE [Concomitant]
  6. ATENOLOL [Concomitant]
  7. IMURAN [Concomitant]

REACTIONS (6)
  - Urinary tract infection [Unknown]
  - Headache [Recovered/Resolved]
  - Vomiting [Recovered/Resolved]
  - Diarrhoea [Unknown]
  - Anaemia [Unknown]
  - Haematocrit decreased [Unknown]
